FAERS Safety Report 20207745 (Version 1)
Quarter: 2021Q4

REPORT INFORMATION
  Report Type: Spontaneous
  Country: CN (occurrence: CN)
  Receive Date: 20211220
  Receipt Date: 20211220
  Transmission Date: 20220303
  Serious: Yes (Hospitalization, Other)
  Sender: FDA-Public Use
  Company Number: CN-NOVARTISPH-NVSC2021CN287852

PATIENT
  Age: 44 Year
  Sex: Female
  Weight: 57.5 kg

DRUGS (5)
  1. TRILEPTAL [Suspect]
     Active Substance: OXCARBAZEPINE
     Indication: Mania
     Dosage: 0.9 G, QD
     Route: 048
     Dates: start: 20211021, end: 20211203
  2. OLANZAPINE [Suspect]
     Active Substance: OLANZAPINE
     Indication: Mental disorder
     Dosage: 10 MG, BID
     Route: 048
     Dates: start: 20211021, end: 20211203
  3. LITHIUM CARBONATE [Suspect]
     Active Substance: LITHIUM CARBONATE
     Indication: Mania
     Dosage: 1.25 G, QD
     Route: 030
     Dates: start: 20211021, end: 20211203
  4. CLONAZEPAM [Concomitant]
     Active Substance: CLONAZEPAM
     Indication: Sleep disorder
     Dosage: 2 MG, QD
     Route: 048
     Dates: start: 20211021, end: 20211203
  5. TRIHEXYPHENIDYL HYDROCHLORIDE [Concomitant]
     Active Substance: TRIHEXYPHENIDYL HYDROCHLORIDE
     Indication: Extrapyramidal disorder
     Dosage: 2 MG, BID
     Route: 048
     Dates: start: 20211021, end: 20211203

REACTIONS (1)
  - Hepatic function abnormal [Unknown]

NARRATIVE: CASE EVENT DATE: 20211129
